FAERS Safety Report 7652466-1 (Version None)
Quarter: 2011Q3

REPORT INFORMATION
  Report Type: 
  Country: None (occurrence: None)
  Receive Date: 20110803
  Receipt Date: 20110729
  Transmission Date: 20111222
  Serious: Yes (Death)
  Sender: FDA-Public Use
  Company Number: US-ASTELLAS-2011US004217

PATIENT
  Sex: Male
  Weight: 82 kg

DRUGS (7)
  1. CELLCEPT [Concomitant]
     Indication: LIVER TRANSPLANT
     Dosage: UNK
     Route: 065
  2. NORVASC [Concomitant]
     Indication: HYPERTENSION
     Dosage: UNK
     Route: 065
  3. ISORDIL [Concomitant]
     Indication: CARDIAC DISORDER
     Dosage: UNK
     Route: 065
  4. DIFLUCAN [Concomitant]
     Indication: ANTIFUNGAL TREATMENT
     Dosage: UNK
     Route: 065
  5. PROGRAF [Suspect]
     Indication: LIVER TRANSPLANT
     Dosage: 0.5 MG, BID
     Route: 048
  6. LISINOPRIL [Concomitant]
     Indication: HYPERTENSION
     Dosage: UNK
     Route: 065
  7. LOPRESSOR [Concomitant]
     Indication: HYPERTENSION
     Dosage: UNK
     Route: 065

REACTIONS (1)
  - CARDIAC PROCEDURE COMPLICATION [None]
